FAERS Safety Report 23910001 (Version 5)
Quarter: 2024Q4

REPORT INFORMATION
  Report Type: Spontaneous
  Country: US (occurrence: US)
  Receive Date: 20240528
  Receipt Date: 20241114
  Transmission Date: 20250115
  Serious: No
  Sender: PFIZER
  Company Number: US-PFIZER INC-PV202400068193

PATIENT
  Age: 69 Year
  Sex: Female
  Weight: 78.93 kg

DRUGS (3)
  1. PREMARIN [Suspect]
     Active Substance: ESTROGENS, CONJUGATED
     Indication: Atrophic vulvovaginitis
     Dosage: 1 G, 3 TIMES A WEEK
     Route: 067
     Dates: start: 20240620
  2. PREMARIN [Suspect]
     Active Substance: ESTROGENS, CONJUGATED
     Dosage: 0.5 G, ONCE EVERY THREE DAYS
     Route: 067
  3. CLOBETASOL PROPIONATE [Concomitant]
     Active Substance: CLOBETASOL PROPIONATE
     Indication: Swelling
     Dosage: UNK, 2X/DAY

REACTIONS (2)
  - Acoustic stimulation tests abnormal [Unknown]
  - Off label use [Unknown]
